FAERS Safety Report 7609520-X (Version None)
Quarter: 2011Q3

REPORT INFORMATION
  Report Type: 
  Country: None (occurrence: None)
  Receive Date: 20110714
  Receipt Date: 20110712
  Transmission Date: 20111222
  Serious: Yes (Death)
  Sender: FDA-Public Use
  Company Number: PHHY2011AU62223

PATIENT
  Age: 21 Year
  Sex: Male

DRUGS (11)
  1. FLUOXETINE [Interacting]
     Dosage: UNK
  2. METHAMPHETAMINE HYDROCHLORIDE [Interacting]
     Dosage: UNK
  3. AMPHETAMINES [Interacting]
     Dosage: UNK
  4. DIAZEPAM [Suspect]
     Dosage: UNK
  5. METHYLENEDIOXYMETHAMPHETAMINE [Interacting]
     Dosage: UNK
  6. CODEINE SULFATE [Interacting]
     Dosage: UNK
  7. MORPHINE [Interacting]
     Dosage: UNK
  8. SERTRALINE HYDROCHLORIDE [Interacting]
     Dosage: UNK
  9. KETAMINE HCL [Interacting]
     Dosage: UNK
  10. TEMAZEPAM [Interacting]
     Dosage: UNK
  11. MONOACETYL MORPHINE [Interacting]
     Dosage: UNK

REACTIONS (3)
  - TOXICITY TO VARIOUS AGENTS [None]
  - PULMONARY OEDEMA [None]
  - DRUG INTERACTION [None]
